FAERS Safety Report 9474637 (Version 2)
Quarter: 2013Q3

REPORT INFORMATION
  Report Type: Spontaneous
  Country: US (occurrence: US)
  Receive Date: 20130823
  Receipt Date: 20130917
  Transmission Date: 20140515
  Serious: No
  Sender: FDA-Public Use
  Company Number: US-PFIZER INC-2013242031

PATIENT
  Age: 64 Year
  Sex: Male

DRUGS (2)
  1. INLYTA [Suspect]
     Indication: RENAL CANCER
     Dosage: 5 MG, 2X/DAY
     Dates: start: 20130327
  2. INLYTA [Suspect]
     Dosage: 5 MG, 1X/DAY FOR 5 DAYS THEN STOPS
     Dates: start: 20130327

REACTIONS (10)
  - Pain in extremity [Unknown]
  - Oedema peripheral [Unknown]
  - Gastrointestinal disorder [Unknown]
  - Constipation [Unknown]
  - Diarrhoea [Unknown]
  - Fatigue [Unknown]
  - Stomatitis [Unknown]
  - Swollen tongue [Unknown]
  - Nausea [Unknown]
  - Confusional state [Unknown]
